FAERS Safety Report 9741882 (Version 1)
Quarter: 2013Q4

REPORT INFORMATION
  Report Type: Report from Study
  Country: US (occurrence: US)
  Receive Date: 20131210
  Receipt Date: 20131210
  Transmission Date: 20140711
  Serious: Yes (Death)
  Sender: FDA-Public Use
  Company Number: PHEH2013US025424

PATIENT
  Sex: Male

DRUGS (2)
  1. AFINITOR [Suspect]
     Indication: COLON CANCER
     Dosage: 7.5 MG, DAILY
     Route: 048
  2. AFINITOR [Suspect]
     Indication: OFF LABEL USE

REACTIONS (1)
  - Death [Fatal]
